FAERS Safety Report 12835735 (Version 1)
Quarter: 2016Q4

REPORT INFORMATION
  Report Type: Other
  Country: US (occurrence: US)
  Receive Date: 20161011
  Receipt Date: 20161011
  Transmission Date: 20170207
  Serious: No
  Sender: FDA-Public Use
  Company Number: US-TRIS PHARMA, INC.-1058183

PATIENT
  Age: 1 Year
  Sex: Female
  Weight: 8.18 kg

DRUGS (1)
  1. IBUPROFEN ORAL SUSPENSION DROPS [Suspect]
     Active Substance: IBUPROFEN
     Dates: start: 20151001, end: 20151109

REACTIONS (1)
  - Burning sensation [None]

NARRATIVE: CASE EVENT DATE: 20151110
